FAERS Safety Report 5359653-6 (Version None)
Quarter: 2007Q2

REPORT INFORMATION
  Report Type: 
  Country: None (occurrence: None)
  Receive Date: 20070615
  Receipt Date: 20070606
  Transmission Date: 20071010
  Serious: Yes (Hospitalization)
  Sender: FDA-Public Use
  Company Number: FR-ABBOTT-07P-056-0366063-00

PATIENT
  Age: 58 Year
  Sex: Female

DRUGS (4)
  1. NORVIR [Suspect]
     Indication: HIV INFECTION
     Route: 048
  2. DOCETAXEL [Suspect]
     Indication: DRUG USE FOR UNKNOWN INDICATION
     Route: 042
     Dates: start: 20070129
  3. ATAZANAVIR SULFATE [Concomitant]
     Indication: HIV INFECTION
     Route: 048
  4. ABACAVIR/LAMIVUDIN [Concomitant]
     Indication: HIV INFECTION

REACTIONS (3)
  - ERYTHEMA MULTIFORME [None]
  - FEBRILE BONE MARROW APLASIA [None]
  - WEIGHT DECREASED [None]
